FAERS Safety Report 5134481-5 (Version None)
Quarter: 2006Q4

REPORT INFORMATION
  Report Type: 
  Country: None (occurrence: None)
  Receive Date: 20061025
  Receipt Date: 20030501
  Transmission Date: 20070319
  Serious: Yes (Death)
  Sender: FDA-Public Use
  Company Number: US-PURDUE-USA_2003_0006361

PATIENT
  Age: 23 Year
  Sex: Female

DRUGS (2)
  1. OXYCONTIN [Suspect]
     Indication: DRUG ABUSER
     Dosage: UNK MG, UNK
     Route: 065
  2. ALCOHOL [Suspect]
     Indication: ALCOHOL USE
     Dosage: UNK ML, UNK
     Route: 065

REACTIONS (4)
  - DROWNING [None]
  - DRUG SCREEN POSITIVE [None]
  - FALL [None]
  - VICTIM OF CRIME [None]
